FAERS Safety Report 23153550 (Version 1)
Quarter: 2023Q4

REPORT INFORMATION
  Report Type: Spontaneous
  Country: US (occurrence: US)
  Receive Date: 20231107
  Receipt Date: 20231107
  Transmission Date: 20240110
  Serious: No
  Sender: FDA-Public Use
  Company Number: US-ALKERMES INC.-ALK-2023-004181

PATIENT
  Sex: Female

DRUGS (2)
  1. VIVITROL [Suspect]
     Active Substance: NALTREXONE
     Indication: Alcoholism
     Dosage: 380 MILLIGRAM, QMO
     Route: 030
     Dates: start: 20231016
  2. NALTREXONE [Suspect]
     Active Substance: NALTREXONE
     Indication: Alcoholism
     Dosage: UNK
     Route: 048

REACTIONS (7)
  - Aptyalism [Unknown]
  - Arrhythmia [Unknown]
  - Fatigue [Unknown]
  - Nausea [Unknown]
  - Injection site reaction [Unknown]
  - Injection site swelling [Unknown]
  - Abdominal discomfort [Unknown]
